FAERS Safety Report 18965768 (Version 1)
Quarter: 2021Q1

REPORT INFORMATION
  Report Type: Spontaneous
  Country: US (occurrence: US)
  Receive Date: 20210303
  Receipt Date: 20210303
  Transmission Date: 20210420
  Serious: Yes (Other)
  Sender: FDA-Public Use
  Company Number: US-ALLERGAN-2102977US

PATIENT
  Sex: Female

DRUGS (4)
  1. REFRESH TEARS [Suspect]
     Active Substance: CARBOXYMETHYLCELLULOSE SODIUM
     Dosage: 2 GTT, Q4HR
     Route: 047
     Dates: end: 202010
  2. REFRESH TEARS [Suspect]
     Active Substance: CARBOXYMETHYLCELLULOSE SODIUM
     Indication: DRY EYE
     Dosage: 2 GTT, Q2HR
     Route: 047
     Dates: start: 202010
  3. REFRESH LIQUIGEL [Suspect]
     Active Substance: CARBOXYMETHYLCELLULOSE SODIUM
     Indication: DRY EYE
     Dosage: 2 GTT, QHS
     Route: 047
     Dates: start: 2019, end: 2020
  4. SYSTANE (HYPROMELLOSE 2910 (4000 MPA.S)) [Concomitant]
     Active Substance: HYPROMELLOSE 2910 (4000 MPA.S)
     Indication: DRY EYE
     Route: 047

REACTIONS (6)
  - Drug ineffective [Unknown]
  - Retinal tear [Unknown]
  - Foreign body sensation in eyes [Not Recovered/Not Resolved]
  - Retinal detachment [Unknown]
  - Eye injury [Unknown]
  - Incorrect dose administered [Unknown]
